FAERS Safety Report 25876952 (Version 1)
Quarter: 2025Q4

REPORT INFORMATION
  Report Type: Spontaneous
  Country: EU (occurrence: EU)
  Receive Date: 20251003
  Receipt Date: 20251003
  Transmission Date: 20260118
  Serious: Yes (Other)
  Sender: MYLAN
  Company Number: EU-MYLANLABS-2025M1083018

PATIENT
  Age: 76 Year
  Sex: Male

DRUGS (8)
  1. PACLITAXEL [Suspect]
     Active Substance: PACLITAXEL
     Indication: Squamous cell carcinoma of skin
     Dosage: UNK UNK, CYCLE (5 CYCLES)
  2. PACLITAXEL [Suspect]
     Active Substance: PACLITAXEL
     Indication: Squamous cell carcinoma
     Dosage: UNK UNK, CYCLE (5 CYCLES)
     Route: 065
  3. PACLITAXEL [Suspect]
     Active Substance: PACLITAXEL
     Dosage: UNK UNK, CYCLE (5 CYCLES)
     Route: 065
  4. PACLITAXEL [Suspect]
     Active Substance: PACLITAXEL
     Dosage: UNK UNK, CYCLE (5 CYCLES)
  5. CAPECITABINE [Suspect]
     Active Substance: CAPECITABINE
     Indication: Squamous cell carcinoma of skin
     Dosage: UNK, CYCLE (5 CYCLES)
  6. CAPECITABINE [Suspect]
     Active Substance: CAPECITABINE
     Indication: Squamous cell carcinoma
     Dosage: UNK, CYCLE (5 CYCLES)
     Route: 065
  7. CAPECITABINE [Suspect]
     Active Substance: CAPECITABINE
     Dosage: UNK, CYCLE (5 CYCLES)
     Route: 065
  8. CAPECITABINE [Suspect]
     Active Substance: CAPECITABINE
     Dosage: UNK, CYCLE (5 CYCLES)

REACTIONS (2)
  - Neurotoxicity [Unknown]
  - Off label use [Unknown]
